FAERS Safety Report 18335890 (Version 1)
Quarter: 2020Q4

REPORT INFORMATION
  Report Type: Spontaneous
  Country: FR (occurrence: FR)
  Receive Date: 20201001
  Receipt Date: 20201001
  Transmission Date: 20210113
  Serious: Yes (Hospitalization, Other)
  Sender: FDA-Public Use
  Company Number: FR-PFIZER INC-2020375963

PATIENT
  Age: 27 Year
  Sex: Male
  Weight: 69 kg

DRUGS (8)
  1. SERESTA [Concomitant]
     Active Substance: OXAZEPAM
     Indication: EPILEPSY
     Dosage: 10 MG, 1X/DAY
     Route: 048
  2. LYRICA [Suspect]
     Active Substance: PREGABALIN
     Dosage: 500 MG, SINGLE (SINGLE VS. USUAL DOSE 50 MG / DAY)
     Route: 048
     Dates: start: 20200911, end: 20200911
  3. RISPERDAL [Concomitant]
     Active Substance: RISPERIDONE
     Indication: EPILEPSY
     Dosage: 2 DF, 1X/DAY
     Route: 048
  4. LAMICTAL [Concomitant]
     Active Substance: LAMOTRIGINE
     Indication: EPILEPSY
     Dosage: 25 MG, 1X/DAY
     Route: 048
  5. ZARONTIN [Concomitant]
     Active Substance: ETHOSUXIMIDE
     Indication: EPILEPSY
     Dosage: 16 ML, 1X/DAY
     Route: 048
  6. LOXAPAC [LOXAPINE SUCCINATE] [Concomitant]
     Active Substance: LOXAPINE SUCCINATE
     Indication: EPILEPSY
     Dosage: 1 DF, AS NEEDED
     Route: 048
  7. LYRICA [Suspect]
     Active Substance: PREGABALIN
     Dosage: 50 MG, DAILY
  8. DEPAKINE CRONO [VALPROATE SODIUM;VALPROIC ACID] [Concomitant]
     Indication: EPILEPSY
     Dosage: 2 G, 1X/DAY
     Route: 048

REACTIONS (3)
  - Incorrect dose administered [Recovered/Resolved]
  - Agitation [Recovered/Resolved]
  - Tonic clonic movements [Recovered/Resolved]

NARRATIVE: CASE EVENT DATE: 20200911
